FAERS Safety Report 5886978-8 (Version None)
Quarter: 2008Q3

REPORT INFORMATION
  Report Type: 
  Country: None (occurrence: None)
  Receive Date: 20080917
  Receipt Date: 20080904
  Transmission Date: 20090109
  Serious: No
  Sender: FDA-Public Use
  Company Number: US-B.I. PHARMACEUTICALS,INC./RIDGEFIELD-2008-BP-12422BP

PATIENT
  Sex: Male

DRUGS (2)
  1. FLOMAX [Suspect]
     Indication: BENIGN PROSTATIC HYPERPLASIA
     Dosage: .4MG
     Route: 048
     Dates: start: 20070801, end: 20080803
  2. METOPROL [Concomitant]
     Indication: HYPERTENSION
     Route: 048

REACTIONS (4)
  - CONSTIPATION [None]
  - RHINORRHOEA [None]
  - RHINOVIRUS INFECTION [None]
  - SYNCOPE [None]
